FAERS Safety Report 25097021 (Version 3)
Quarter: 2025Q2

REPORT INFORMATION
  Report Type: Spontaneous
  Country: JP (occurrence: JP)
  Receive Date: 20250319
  Receipt Date: 20250522
  Transmission Date: 20250717
  Serious: Yes (Death)
  Sender: MERCK SHARP & DOHME LLC
  Company Number: JP-009507513-2262039

PATIENT
  Age: 34 Year
  Sex: Male

DRUGS (2)
  1. LETERMOVIR [Suspect]
     Active Substance: LETERMOVIR
  2. URSODIOL [Concomitant]
     Active Substance: URSODIOL

REACTIONS (2)
  - Venoocclusive liver disease [Fatal]
  - Enzyme inhibition [Fatal]
